FAERS Safety Report 8617812-0 (Version None)
Quarter: 2012Q3

REPORT INFORMATION
  Report Type: 
  Country: None (occurrence: None)
  Receive Date: 20120824
  Receipt Date: 20120220
  Transmission Date: 20120928
  Serious: No
  Sender: FDA-Public Use
  Company Number: US-ASTRAZENECA-2012SE11860

PATIENT
  Age: 39 Year
  Sex: Female
  Weight: 53.1 kg

DRUGS (2)
  1. SYMBICORT [Suspect]
     Dosage: 160/4.5 MCG, TWO PUFFS, TWO TIMES A DAY
     Route: 055
  2. SYMBICORT [Suspect]
     Indication: ASTHMA
     Dosage: ONE PUFF, PER DAY
     Route: 055

REACTIONS (3)
  - OFF LABEL USE [None]
  - DRUG DOSE OMISSION [None]
  - ASTHMA [None]
